FAERS Safety Report 7118981-4 (Version None)
Quarter: 2010Q4

REPORT INFORMATION
  Report Type: 
  Country: None (occurrence: None)
  Receive Date: 20101123
  Receipt Date: 20101116
  Transmission Date: 20110411
  Serious: Yes (Hospitalization)
  Sender: FDA-Public Use
  Company Number: A0774932A

PATIENT
  Age: 52 Year
  Sex: Male
  Weight: 102.7 kg

DRUGS (5)
  1. AVANDIA [Suspect]
     Indication: DIABETES MELLITUS
     Dosage: 8MG PER DAY
     Route: 048
     Dates: start: 20060301, end: 20070101
  2. LISINOPRIL [Concomitant]
  3. METFORMIN HCL [Concomitant]
  4. METOPROLOL [Concomitant]
  5. CRESTOR [Concomitant]

REACTIONS (7)
  - ARTERIOSCLEROSIS [None]
  - BUNDLE BRANCH BLOCK RIGHT [None]
  - CORONARY ARTERY DISEASE [None]
  - CORONARY ARTERY OCCLUSION [None]
  - MYOCARDIAL INFARCTION [None]
  - SEPSIS [None]
  - SINUS BRADYCARDIA [None]
